FAERS Safety Report 6976257-X (Version None)
Quarter: 2010Q3

REPORT INFORMATION
  Report Type: 
  Country: None (occurrence: None)
  Receive Date: 20100910
  Receipt Date: 20090421
  Transmission Date: 20110219
  Serious: No
  Sender: FDA-Public Use
  Company Number: US-WYE-H09049209

PATIENT
  Sex: Female
  Weight: 60.38 kg

DRUGS (5)
  1. PRISTIQ [Suspect]
     Indication: DEPRESSION
     Route: 048
     Dates: start: 20090411, end: 20090419
  2. PRISTIQ [Suspect]
     Dosage: ^CUT IT IN HALF^ PER MD
     Route: 048
     Dates: start: 20090420, end: 20090421
  3. REGLAN [Concomitant]
  4. PRILOSEC [Concomitant]
  5. CARAFATE [Concomitant]

REACTIONS (11)
  - ASTHENIA [None]
  - BURNING SENSATION [None]
  - DECREASED APPETITE [None]
  - DISCOMFORT [None]
  - DRUG WITHDRAWAL SYNDROME [None]
  - DYSURIA [None]
  - HEADACHE [None]
  - NAUSEA [None]
  - RESTLESSNESS [None]
  - TREMOR [None]
  - VOMITING [None]
